FAERS Safety Report 18081024 (Version 3)
Quarter: 2021Q3

REPORT INFORMATION
  Report Type: Spontaneous
  Country: FR (occurrence: FR)
  Receive Date: 20200728
  Receipt Date: 20210731
  Transmission Date: 20211014
  Serious: Yes (Hospitalization, Other)
  Sender: FDA-Public Use
  Company Number: NVSC2020FR209670

PATIENT
  Sex: Female

DRUGS (13)
  1. DEPAKINE CHRONO [Suspect]
     Active Substance: VALPROATE SODIUM
     Indication: EPILEPSY
     Dosage: 2 DF, QD (STRENGTH 500 MG )
     Route: 048
     Dates: start: 199411
  2. DEPAKINE CHRONO [Suspect]
     Active Substance: VALPROATE SODIUM
     Dosage: 1.5 G
     Route: 048
     Dates: start: 19951027
  3. DEPAKINE CHRONO [Suspect]
     Active Substance: VALPROATE SODIUM
     Dosage: 1000 MG
     Route: 048
     Dates: start: 201601
  4. GABAPENTIN. [Suspect]
     Active Substance: GABAPENTIN
     Indication: EPILEPSY
     Dosage: 1200 MG, QD
     Route: 048
     Dates: start: 199510
  5. GABAPENTIN. [Suspect]
     Active Substance: GABAPENTIN
     Dosage: 400 MG, 1 TABLET IN THE EVENING
     Route: 048
     Dates: end: 200803
  6. GABAPENTIN. [Suspect]
     Active Substance: GABAPENTIN
     Dosage: 900 MG
     Route: 048
  7. GABAPENTIN. [Suspect]
     Active Substance: GABAPENTIN
     Dosage: 3 DF (STRENGTH 400 MG)
     Route: 048
     Dates: start: 1997
  8. DEPAKINE CHRONO [Suspect]
     Active Substance: VALPROATE SODIUM
     Dosage: 3 DF, QD (STRENGTH 500 MG)
     Route: 048
     Dates: start: 201601
  9. CLARITINE [Concomitant]
     Active Substance: LORATADINE
     Indication: ASTHMA
     Dosage: UNK
     Route: 065
  10. SPECIAFOLDINE [Concomitant]
     Active Substance: FOLIC ACID
     Indication: PRODUCT USED FOR UNKNOWN INDICATION
     Dosage: UNK
     Route: 065
  11. GABAPENTIN. [Suspect]
     Active Substance: GABAPENTIN
     Dosage: 3 DF
     Route: 048
     Dates: start: 19960116
  12. DEPAKINE CHRONO [Suspect]
     Active Substance: VALPROATE SODIUM
     Dosage: 750 MG, Q12H (750MG MORNING AND EVENING)
     Route: 048
     Dates: start: 19950224
  13. DEPAKINE CHRONO [Suspect]
     Active Substance: VALPROATE SODIUM
     Dosage: 3 DF, QD (STRENGTH 500 MG)
     Route: 048
     Dates: start: 1997, end: 201601

REACTIONS (12)
  - Disturbance in attention [Recovered/Resolved]
  - Fatigue [Unknown]
  - Exposure during pregnancy [Unknown]
  - Epilepsy [Unknown]
  - Balance disorder [Unknown]
  - Headache [Recovered/Resolved]
  - Somnolence [Unknown]
  - Speech disorder [Unknown]
  - Malaise [Unknown]
  - Epilepsy [Unknown]
  - Cerebellar ataxia [Unknown]
  - Loss of consciousness [Unknown]

NARRATIVE: CASE EVENT DATE: 19940817
